FAERS Safety Report 12464813 (Version 4)
Quarter: 2016Q3

REPORT INFORMATION
  Report Type: Spontaneous
  Country: US (occurrence: US)
  Receive Date: 20160614
  Receipt Date: 20160816
  Transmission Date: 20161109
  Serious: Yes (Hospitalization, Other)
  Sender: FDA-Public Use
  Company Number: US-PFIZER INC-2016289110

PATIENT
  Age: 75 Year
  Sex: Female
  Weight: 102 kg

DRUGS (4)
  1. TIKOSYN [Suspect]
     Active Substance: DOFETILIDE
     Dosage: 125 MG, 2X/DAY, (ONE IN MORNING AND ONE IN EVENING)
     Dates: start: 201605
  2. TIKOSYN [Suspect]
     Active Substance: DOFETILIDE
     Dosage: 250 MG, DAILY
  3. METOPROLOL TARTRATE. [Suspect]
     Active Substance: METOPROLOL TARTRATE
     Dosage: 100 MG, 2X/DAY
  4. METOPROLOL TARTRATE. [Suspect]
     Active Substance: METOPROLOL TARTRATE
     Dosage: 25 MG, 2X/DAY

REACTIONS (7)
  - Dizziness [Unknown]
  - Atrial fibrillation [Not Recovered/Not Resolved]
  - Visual impairment [Unknown]
  - Asthenia [Unknown]
  - Angina pectoris [Unknown]
  - Weight increased [Unknown]
  - Drug ineffective [Unknown]
